FAERS Safety Report 24531099 (Version 2)
Quarter: 2025Q2

REPORT INFORMATION
  Report Type: Spontaneous
  Country: FR (occurrence: FR)
  Receive Date: 20241022
  Receipt Date: 20250605
  Transmission Date: 20250716
  Serious: Yes (Hospitalization, Other)
  Sender: NOVEN
  Company Number: FR-NOVEN PHARMACEUTICALS, INC.-2024-NOV-FR001374

PATIENT
  Age: 74 Year
  Sex: Female

DRUGS (1)
  1. DEXTROAMPHETAMINE [Suspect]
     Active Substance: DEXTROAMPHETAMINE
     Indication: Narcolepsy
     Route: 065

REACTIONS (2)
  - Dementia with Lewy bodies [Recovered/Resolved]
  - Drug abuse [Unknown]
